FAERS Safety Report 6177790-3 (Version None)
Quarter: 2009Q2

REPORT INFORMATION
  Report Type: 
  Country: None (occurrence: None)
  Receive Date: 20090501
  Receipt Date: 20090501
  Transmission Date: 20091009
  Serious: Yes (Hospitalization)
  Sender: FDA-Public Use
  Company Number: None

PATIENT
  Sex: Female
  Weight: 54.4 kg

DRUGS (6)
  1. CISPLATIN [Suspect]
     Dosage: 85 MG
  2. DOXORUBICIN HYDROCHLORIDE [Suspect]
     Dosage: 76 MG
  3. TAXOL [Suspect]
     Dosage: 270 MG
  4. NEULASTA [Suspect]
     Dosage: 6 MG
  5. LOVENOX [Concomitant]
  6. ZOFRAN [Concomitant]

REACTIONS (9)
  - BLOOD CREATININE INCREASED [None]
  - BLOOD POTASSIUM DECREASED [None]
  - BLOOD UREA INCREASED [None]
  - DEHYDRATION [None]
  - ENTEROCUTANEOUS FISTULA [None]
  - FISTULA DISCHARGE [None]
  - HYPONATRAEMIA [None]
  - POSTOPERATIVE WOUND COMPLICATION [None]
  - WOUND EVISCERATION [None]
